FAERS Safety Report 10167225 (Version 1)
Quarter: 2014Q2

REPORT INFORMATION
  Report Type: Spontaneous
  Country: US (occurrence: US)
  Receive Date: 20140512
  Receipt Date: 20140512
  Transmission Date: 20141212
  Serious: No
  Sender: FDA-Public Use
  Company Number: US-PFIZER INC-2014129516

PATIENT
  Age: 51 Year
  Sex: Female
  Weight: 130 kg

DRUGS (3)
  1. LYRICA [Suspect]
     Indication: NEUROPATHY PERIPHERAL
     Dosage: 200 MG [TWO CAPSULES OF 100MG], 3X/DAY
  2. WARFARIN [Concomitant]
     Indication: ANTICOAGULANT THERAPY
     Dosage: 7 MG, DAILY
  3. METHADONE [Concomitant]
     Indication: PAIN
     Dosage: 20 MG, 3X/DAY

REACTIONS (3)
  - Influenza [Unknown]
  - Malaise [Unknown]
  - Hypersomnia [Unknown]
